FAERS Safety Report 21633617 (Version 1)
Quarter: 2022Q4

REPORT INFORMATION
  Report Type: Report from Study
  Country: US (occurrence: US)
  Receive Date: 20221123
  Receipt Date: 20221123
  Transmission Date: 20230113
  Serious: No
  Sender: FDA-Public Use
  Company Number: US-ABBVIE-21K-163-4186191-00

PATIENT
  Sex: Female

DRUGS (5)
  1. HUMIRA [Suspect]
     Active Substance: ADALIMUMAB
     Indication: Crohn^s disease
     Dosage: TIME INTERVAL: 1 TOTAL: DAY 1
     Route: 058
     Dates: start: 20211118, end: 20211118
  2. HUMIRA [Suspect]
     Active Substance: ADALIMUMAB
     Dosage: TIME INTERVAL: 1 TOTAL: DAY 15
     Route: 058
     Dates: start: 20211201, end: 20211201
  3. HUMIRA [Suspect]
     Active Substance: ADALIMUMAB
     Dosage: DAY 29 AND EVERY OTHER WEEK
     Route: 058
     Dates: start: 20211216, end: 20220425
  4. HUMIRA [Suspect]
     Active Substance: ADALIMUMAB
     Route: 058
     Dates: start: 20220426
  5. HUMIRA [Suspect]
     Active Substance: ADALIMUMAB
     Route: 058

REACTIONS (17)
  - Constipation [Not Recovered/Not Resolved]
  - Facial pain [Unknown]
  - Gastrointestinal sounds abnormal [Not Recovered/Not Resolved]
  - Insomnia [Unknown]
  - Frequent bowel movements [Unknown]
  - Frequent bowel movements [Unknown]
  - SARS-CoV-2 test positive [Unknown]
  - Crohn^s disease [Recovered/Resolved]
  - Arthralgia [Unknown]
  - Sinusitis [Unknown]
  - Therapeutic response shortened [Unknown]
  - Hyperhidrosis [Unknown]
  - Constipation [Unknown]
  - Nausea [Unknown]
  - Diarrhoea [Unknown]
  - Chills [Unknown]
  - Pain [Unknown]

NARRATIVE: CASE EVENT DATE: 20210101
